FAERS Safety Report 24905114 (Version 6)
Quarter: 2025Q3

REPORT INFORMATION
  Report Type: Report from Study
  Country: US (occurrence: US)
  Receive Date: 20250130
  Receipt Date: 20250729
  Transmission Date: 20251021
  Serious: Yes (Other)
  Sender: SUNOVION
  Company Number: US-SUMITOMO PHARMA SWITZERLAND GMBH-2025SPA000738

PATIENT

DRUGS (20)
  1. ORGOVYX [Suspect]
     Active Substance: RELUGOLIX
     Indication: Prostate cancer
     Dosage: 360 MG, SINGLE
     Route: 048
  2. ORGOVYX [Suspect]
     Active Substance: RELUGOLIX
     Dosage: 120 MG, QD
     Route: 048
     Dates: start: 20241226
  3. GEMTESA [Suspect]
     Active Substance: VIBEGRON
     Indication: Product used for unknown indication
     Route: 048
  4. PREDNISONE [Suspect]
     Active Substance: PREDNISONE
     Indication: Product used for unknown indication
     Route: 065
  5. ASPIRIN [Concomitant]
     Active Substance: ASPIRIN
     Route: 065
  6. Calcium+vit d [Concomitant]
     Route: 065
  7. PROBIOTICS NOS [Concomitant]
     Active Substance: PROBIOTICS NOS
     Route: 065
  8. MINERALS\VITAMINS [Concomitant]
     Active Substance: MINERALS\VITAMINS
     Route: 065
  9. Ginger and turmeric [Concomitant]
     Route: 065
  10. GLIMEPIRIDE [Concomitant]
     Active Substance: GLIMEPIRIDE
     Route: 065
  11. L-METHYLFOLATE CALCIUM [Concomitant]
     Active Substance: LEVOMEFOLATE CALCIUM
     Route: 065
  12. NITROFURANTOIN [Concomitant]
     Active Substance: NITROFURANTOIN
     Route: 065
  13. MENAQUINONE 6 [Concomitant]
     Active Substance: MENAQUINONE 6
     Route: 065
  14. ZINC [Concomitant]
     Active Substance: ZINC
     Route: 065
  15. OMEGA 3 [Concomitant]
     Active Substance: CAPSAICIN
     Route: 065
  16. GARLIC [Concomitant]
     Active Substance: GARLIC
     Route: 065
  17. ABIRATERONE ACETATE [Concomitant]
     Active Substance: ABIRATERONE ACETATE
     Route: 065
  18. VITAMIN D3 [Concomitant]
     Active Substance: CHOLECALCIFEROL
     Route: 065
  19. DONEPEZIL [Concomitant]
     Active Substance: DONEPEZIL
     Route: 065
  20. MEMANTINE [Concomitant]
     Active Substance: MEMANTINE
     Route: 065

REACTIONS (8)
  - Neovascular age-related macular degeneration [Unknown]
  - Mass [Unknown]
  - Personality change [Unknown]
  - Blood glucose fluctuation [Not Recovered/Not Resolved]
  - Urinary tract infection [Unknown]
  - Dizziness [Unknown]
  - Constipation [Unknown]
  - Hot flush [Unknown]
